FAERS Safety Report 26019541 (Version 1)
Quarter: 2025Q4

REPORT INFORMATION
  Report Type: Spontaneous
  Country: US (occurrence: US)
  Receive Date: 20251110
  Receipt Date: 20251110
  Transmission Date: 20260119
  Serious: Yes (Other)
  Sender: ACCORD
  Company Number: US-Accord-512036

PATIENT
  Age: 67 Year
  Sex: Female

DRUGS (6)
  1. CARBOPLATIN [Suspect]
     Active Substance: CARBOPLATIN
     Indication: Ovarian cancer
  2. PACLITAXEL [Suspect]
     Active Substance: PACLITAXEL
     Indication: Ovarian cancer
  3. PREDNISONE [Concomitant]
     Active Substance: PREDNISONE
     Indication: Cancer pain
     Dosage: INCREASED FROM 10-15 MG TO 20 MG
  4. PACLITAXEL [Suspect]
     Active Substance: PACLITAXEL
     Indication: Metastases to peritoneum
  5. PREDNISONE [Concomitant]
     Active Substance: PREDNISONE
     Indication: Inflammation
     Dosage: INCREASED FROM 10-15 MG TO 20 MG
  6. CARBOPLATIN [Suspect]
     Active Substance: CARBOPLATIN
     Indication: Metastases to peritoneum

REACTIONS (1)
  - Pancytopenia [Unknown]
